FAERS Safety Report 6683230-8 (Version None)
Quarter: 2010Q2

REPORT INFORMATION
  Report Type: 
  Country: None (occurrence: None)
  Receive Date: 20100415
  Receipt Date: 20100406
  Transmission Date: 20101027
  Serious: Yes (Other)
  Sender: FDA-Public Use
  Company Number: CH-JNJFOC-20100401631

PATIENT
  Age: 34 Year
  Sex: Female

DRUGS (5)
  1. REMICADE [Suspect]
     Indication: FISTULA
     Route: 042
  2. REMICADE [Suspect]
     Route: 042
  3. REMICADE [Suspect]
     Indication: CROHN'S DISEASE
     Route: 042
  4. REMICADE [Suspect]
     Route: 042
  5. CHOLESTYRAMINE [Concomitant]
     Route: 048

REACTIONS (4)
  - ACNE [None]
  - ARTHRALGIA [None]
  - SUBCUTANEOUS HAEMATOMA [None]
  - VITAMIN K DEFICIENCY [None]
